FAERS Safety Report 8482149-X (Version None)
Quarter: 2012Q3

REPORT INFORMATION
  Report Type: 
  Country: None (occurrence: None)
  Receive Date: 20120702
  Receipt Date: 20120625
  Transmission Date: 20120928
  Serious: Yes (Hospitalization)
  Sender: FDA-Public Use
  Company Number: US-B.I. PHARMACEUTICALS,INC./RIDGEFIELD-2012-BP-14401BP

PATIENT
  Sex: Female

DRUGS (4)
  1. SOTALOL HCL [Concomitant]
     Dates: start: 20110201
  2. PRADAXA [Suspect]
     Indication: ATRIAL FIBRILLATION
  3. PRADAXA [Suspect]
     Indication: CEREBROVASCULAR ACCIDENT PROPHYLAXIS
     Dosage: 300 MG
     Route: 048
     Dates: start: 20111201, end: 20120618
  4. MULTAQ [Concomitant]
     Dates: end: 20110201

REACTIONS (4)
  - PULMONARY ALVEOLAR HAEMORRHAGE [None]
  - PNEUMONIA [None]
  - HAEMOSIDEROSIS [None]
  - DYSPNOEA [None]
